FAERS Safety Report 5801909-4 (Version None)
Quarter: 2008Q3

REPORT INFORMATION
  Report Type: 
  Country: None (occurrence: None)
  Receive Date: 20080707
  Receipt Date: 20080624
  Transmission Date: 20090109
  Serious: Yes (Hospitalization)
  Sender: FDA-Public Use
  Company Number: DE-LLY01-DE200601004735

PATIENT
  Age: 40 Year
  Sex: Female

DRUGS (8)
  1. CYMBALTA [Suspect]
     Indication: MAJOR DEPRESSION
     Dosage: 30 MG, DAILY (1/D)
     Route: 048
     Dates: start: 20051221, end: 20051223
  2. CYMBALTA [Suspect]
     Dosage: 60 MG, DAILY (1/D)
     Route: 048
     Dates: start: 20051224, end: 20051226
  3. CYMBALTA [Suspect]
     Dosage: 90 MG, DAILY (1/D)
     Route: 048
     Dates: start: 20051227, end: 20051227
  4. CYMBALTA [Suspect]
     Dosage: 120 MG, DAILY (1/D)
     Route: 048
     Dates: start: 20051228, end: 20060109
  5. HALDOL [Concomitant]
     Dosage: UNK, UNKNOWN
     Route: 048
     Dates: start: 20051227, end: 20060109
  6. PROTAXIL [Concomitant]
     Dosage: UNK, UNKNOWN
     Route: 048
     Dates: start: 20051229, end: 20060109
  7. LORAZEPAM [Concomitant]
     Dosage: UNK, UNKNOWN
     Route: 048
     Dates: end: 20060109
  8. AKINETON [Concomitant]
     Dosage: UNK, UNKNOWN
     Dates: start: 20060107, end: 20060108

REACTIONS (1)
  - HEPATIC FAILURE [None]
